FAERS Safety Report 12835771 (Version 1)
Quarter: 2016Q4

REPORT INFORMATION
  Report Type: Spontaneous
  Country: GB (occurrence: GB)
  Receive Date: 20161011
  Receipt Date: 20161011
  Transmission Date: 20170207
  Serious: Yes (Other)
  Sender: FDA-Public Use
  Company Number: GB-TEVA-700426ACC

PATIENT
  Age: 71 Year
  Sex: Female
  Weight: 98.7 kg

DRUGS (10)
  1. PARACETAMOL [Concomitant]
     Active Substance: ACETAMINOPHEN
  2. FUROSEMIDE. [Concomitant]
     Active Substance: FUROSEMIDE
  3. BISOPROLOL [Concomitant]
     Active Substance: BISOPROLOL
     Dosage: 2.5 MILLIGRAM DAILY;
  4. CYCLIZINE [Concomitant]
     Active Substance: CYCLIZINE
  5. RIVAROXABAN [Concomitant]
     Active Substance: RIVAROXABAN
  6. AMIODARONE [Suspect]
     Active Substance: AMIODARONE
     Indication: ATRIAL FIBRILLATION
     Dosage: 200 MILLIGRAM DAILY;
     Route: 048
     Dates: start: 20150818, end: 20160822
  7. WARFARIN [Concomitant]
     Active Substance: WARFARIN
     Dosage: AS PER INR
  8. LISINOPRIL. [Concomitant]
     Active Substance: LISINOPRIL
     Dosage: 10 MILLIGRAM DAILY;
  9. OMEPRAZOLE. [Concomitant]
     Active Substance: OMEPRAZOLE
     Dosage: 20 MILLIGRAM DAILY;
  10. CETIRIZINE [Concomitant]
     Active Substance: CETIRIZINE HYDROCHLORIDE
     Dosage: 10 MILLIGRAM DAILY;

REACTIONS (9)
  - Lethargy [Unknown]
  - Dizziness [Unknown]
  - Hyperhidrosis [Unknown]
  - Diarrhoea [Unknown]
  - Dyspnoea [Unknown]
  - Malaise [Unknown]
  - Hypothyroidism [Recovered/Resolved with Sequelae]
  - Sinus bradycardia [Unknown]
  - Palpitations [Unknown]

NARRATIVE: CASE EVENT DATE: 20160821
